FAERS Safety Report 9496635 (Version 1)
Quarter: 2013Q3

REPORT INFORMATION
  Report Type: Spontaneous
  Country: GR (occurrence: None)
  Receive Date: 20130828
  Receipt Date: 20130828
  Transmission Date: 20140515
  Serious: Yes (Other)
  Sender: FDA-Public Use
  Company Number: ENTC2013-0306

PATIENT
  Sex: Male

DRUGS (3)
  1. STALEVO [Suspect]
  2. INSULIN [Concomitant]
  3. NEUROCIL [Concomitant]

REACTIONS (1)
  - Blood iron decreased [None]
